FAERS Safety Report 8141922-8 (Version None)
Quarter: 2012Q1

REPORT INFORMATION
  Report Type: 
  Country: None (occurrence: None)
  Receive Date: 20120216
  Receipt Date: 20120207
  Transmission Date: 20120608
  Serious: Yes (Death)
  Sender: FDA-Public Use
  Company Number: CA-GLAXOSMITHKLINE-A0964893A

PATIENT
  Sex: Female

DRUGS (6)
  1. METFORMIN HCL [Concomitant]
  2. LANTUS [Concomitant]
  3. DECADRON [Concomitant]
  4. TYKERB [Suspect]
     Indication: BREAST CANCER
     Dosage: 1250MG PER DAY
     Route: 048
     Dates: start: 20111117
  5. ATIVAN [Concomitant]
  6. PAMIDRONATE DISODIUM [Concomitant]

REACTIONS (1)
  - DEATH [None]
